FAERS Safety Report 6732321-1 (Version None)
Quarter: 2010Q2

REPORT INFORMATION
  Report Type: 
  Country: None (occurrence: None)
  Receive Date: 20100519
  Receipt Date: 20100504
  Transmission Date: 20101027
  Serious: Yes (Other)
  Sender: FDA-Public Use
  Company Number: AU-TYCO HEALTHCARE/MALLINCKRODT-T201001178

PATIENT

DRUGS (4)
  1. NALTREXONE HYDROCHLORIDE [Suspect]
     Indication: DRUG DETOXIFICATION
     Dosage: 200 MG VIA GASTRIC TUBE
  2. NALMEFENE [Suspect]
     Indication: DRUG DETOXIFICATION
     Dosage: 2 MG
     Route: 042
  3. PROPOFOL [Suspect]
     Indication: ANAESTHESIA
     Dosage: UNK
  4. KETAMINE HCL [Suspect]
     Indication: ANAESTHESIA
     Dosage: UNK

REACTIONS (1)
  - RESPIRATORY ARREST [None]
